FAERS Safety Report 8500897-X (Version None)
Quarter: 2012Q3

REPORT INFORMATION
  Report Type: 
  Country: None (occurrence: None)
  Receive Date: 20120710
  Receipt Date: 20120705
  Transmission Date: 20120928
  Serious: Yes (Other)
  Sender: FDA-Public Use
  Company Number: PHHY2012DE038742

PATIENT
  Sex: Female

DRUGS (4)
  1. CITALOPRAM HYDROBROMIDE [Concomitant]
     Indication: DEPRESSED MOOD
     Dosage: 1 DF, QD
     Route: 048
     Dates: start: 20110531
  2. GILENYA [Suspect]
     Indication: MULTIPLE SCLEROSIS
     Dosage: 0.5 MG, DAILY
     Route: 048
     Dates: start: 20110503
  3. ESTRADIOL VALERATE/DIENOGEST [Concomitant]
     Indication: CONTRACEPTION
     Dosage: 1 DF, QD
     Route: 048
     Dates: start: 20100315
  4. TOLPERISONE [Concomitant]
     Indication: MUSCLE SPASTICITY
     Dosage: 1 DF, TID
     Route: 048
     Dates: start: 20101115

REACTIONS (3)
  - EYE INFLAMMATION [None]
  - RETINAL PIGMENT EPITHELIAL TEAR [None]
  - UVEITIS [None]
